FAERS Safety Report 17704325 (Version 1)
Quarter: 2020Q2

REPORT INFORMATION
  Report Type: Spontaneous
  Country: US (occurrence: US)
  Receive Date: 20200423
  Receipt Date: 20200423
  Transmission Date: 20200714
  Serious: No
  Sender: FDA-Public Use
  Company Number: None

PATIENT
  Age: 79 Year
  Sex: Male

DRUGS (1)
  1. FIRMAGON [Suspect]
     Active Substance: DEGARELIX ACETATE
     Route: 030
     Dates: start: 201806, end: 202004

REACTIONS (2)
  - General physical health deterioration [None]
  - Product use issue [None]

NARRATIVE: CASE EVENT DATE: 20200423
